FAERS Safety Report 24855500 (Version 1)
Quarter: 2025Q1

REPORT INFORMATION
  Report Type: Spontaneous
  Country: VE (occurrence: None)
  Receive Date: 20250117
  Receipt Date: 20250117
  Transmission Date: 20250409
  Serious: Yes (Hospitalization, Other)
  Sender: UNICHEM
  Company Number: VE-Unichem Pharmaceuticals (USA) Inc-UCM202501-000050

PATIENT
  Age: 15 Year
  Sex: Male

DRUGS (27)
  1. QUETIAPINE [Suspect]
     Active Substance: QUETIAPINE
     Indication: Oppositional defiant disorder
  2. QUETIAPINE [Suspect]
     Active Substance: QUETIAPINE
     Indication: Attention deficit hyperactivity disorder
  3. DIVALPROEX SODIUM [Suspect]
     Active Substance: DIVALPROEX SODIUM
     Indication: Oppositional defiant disorder
  4. DIVALPROEX SODIUM [Suspect]
     Active Substance: DIVALPROEX SODIUM
     Indication: Attention deficit hyperactivity disorder
  5. CLOZAPINE [Suspect]
     Active Substance: CLOZAPINE
     Indication: Sleep disorder
  6. CLOZAPINE [Suspect]
     Active Substance: CLOZAPINE
  7. OLANZAPINE [Suspect]
     Active Substance: OLANZAPINE
     Indication: Oppositional defiant disorder
  8. OLANZAPINE [Suspect]
     Active Substance: OLANZAPINE
     Indication: Attention deficit hyperactivity disorder
  9. CLOZAPINE [Concomitant]
     Active Substance: CLOZAPINE
     Indication: Oppositional defiant disorder
  10. CLOZAPINE [Concomitant]
     Active Substance: CLOZAPINE
     Indication: Attention deficit hyperactivity disorder
  11. DIAZEPAM [Concomitant]
     Active Substance: DIAZEPAM
     Indication: Oppositional defiant disorder
  12. DIAZEPAM [Concomitant]
     Active Substance: DIAZEPAM
     Indication: Attention deficit hyperactivity disorder
  13. Lamotrigine (non-MAH) [Concomitant]
     Indication: Oppositional defiant disorder
  14. Lamotrigine (non-MAH) [Concomitant]
     Indication: Attention deficit hyperactivity disorder
  15. LITHIUM CARBONATE [Concomitant]
     Active Substance: LITHIUM CARBONATE
     Indication: Oppositional defiant disorder
  16. LITHIUM CARBONATE [Concomitant]
     Active Substance: LITHIUM CARBONATE
     Indication: Attention deficit hyperactivity disorder
  17. METHYLPHENIDATE [Concomitant]
     Active Substance: METHYLPHENIDATE
     Indication: Oppositional defiant disorder
  18. METHYLPHENIDATE [Concomitant]
     Active Substance: METHYLPHENIDATE
     Indication: Attention deficit hyperactivity disorder
  19. RISPERIDONE [Concomitant]
     Active Substance: RISPERIDONE
     Indication: Oppositional defiant disorder
  20. RISPERIDONE [Concomitant]
     Active Substance: RISPERIDONE
     Indication: Attention deficit hyperactivity disorder
  21. PROPRANOLOL [Concomitant]
     Active Substance: PROPRANOLOL HYDROCHLORIDE
     Indication: Akathisia
  22. LACTULOSE [Concomitant]
     Active Substance: LACTULOSE
     Indication: Constipation
     Dosage: UNKNOWN
  23. ZUCLOPENTHIXOL [Concomitant]
     Active Substance: ZUCLOPENTHIXOL
     Indication: Oppositional defiant disorder
  24. ZUCLOPENTHIXOL [Concomitant]
     Active Substance: ZUCLOPENTHIXOL
     Indication: Attention deficit hyperactivity disorder
  25. LEVETIRACETAM [Concomitant]
     Active Substance: LEVETIRACETAM
     Indication: Oppositional defiant disorder
  26. LEVETIRACETAM [Concomitant]
     Active Substance: LEVETIRACETAM
     Indication: Attention deficit hyperactivity disorder
  27. CLONAZEPAM [Concomitant]
     Active Substance: CLONAZEPAM
     Indication: Product used for unknown indication

REACTIONS (6)
  - Sepsis [Unknown]
  - Renal failure [Unknown]
  - Gastrointestinal obstruction [Unknown]
  - Colitis [Unknown]
  - Drug level increased [Unknown]
  - Drug interaction [Unknown]
